FAERS Safety Report 5019828-2 (Version None)
Quarter: 2006Q2

REPORT INFORMATION
  Report Type: 
  Country: None (occurrence: None)
  Receive Date: 20060607
  Receipt Date: 20060530
  Transmission Date: 20061013
  Serious: Yes (Death, Life-Threatening)
  Sender: FDA-Public Use
  Company Number: JP-NOVOPROD-253853

PATIENT
  Age: 57 Year
  Sex: Female
  Weight: 52 kg

DRUGS (2)
  1. NOVOSEVEN [Suspect]
     Indication: HAEMORRHAGE
     Dosage: 4.8 MG, BID
     Route: 042
     Dates: start: 20060514, end: 20060514
  2. NOVOSEVEN [Suspect]
     Dosage: 4.8 MG, BID
     Route: 042
     Dates: start: 20060516, end: 20060516

REACTIONS (2)
  - CONCOMITANT DISEASE PROGRESSION [None]
  - TUMOUR EMBOLISM [None]
